FAERS Safety Report 23851362 (Version 1)
Quarter: 2024Q2

REPORT INFORMATION
  Report Type: Spontaneous
  Country: US (occurrence: US)
  Receive Date: 20240514
  Receipt Date: 20240514
  Transmission Date: 20240716
  Serious: Yes (Other)
  Sender: FDA-Public Use
  Company Number: US-CIPLA LTD.-2024US04549

PATIENT

DRUGS (3)
  1. CYCLOPHOSPHAMIDE [Suspect]
     Active Substance: CYCLOPHOSPHAMIDE
     Indication: Nijmegen breakage syndrome
     Dosage: UNK, LOW-DOSE, (40 MG/KG), (CONDITIONING REGIMEN)
     Route: 065
  2. FLUDARABINE [Suspect]
     Active Substance: FLUDARABINE PHOSPHATE
     Indication: Nijmegen breakage syndrome
     Dosage: UNK, (150 MG/M2), (CONDITIONING REGIMEN)
     Route: 065
  3. THYMOCYTE IMMUNE GLOBULIN NOS [Suspect]
     Active Substance: THYMOCYTE IMMUNE GLOBULIN NOS
     Indication: Nijmegen breakage syndrome
     Dosage: UNK, (9MG/KG), (CONDITIONING REGIMEN)
     Route: 065

REACTIONS (1)
  - T-cell type acute leukaemia [Recovered/Resolved]
